FAERS Safety Report 5216665-0 (Version None)
Quarter: 2007Q1

REPORT INFORMATION
  Report Type: 
  Country: None (occurrence: None)
  Receive Date: 20061130
  Receipt Date: 20060523
  Transmission Date: 20070707
  Serious: Yes (Hospitalization, Other)
  Sender: FDA-Public Use
  Company Number: US200604004444

PATIENT
  Age: 16 Year
  Sex: Male
  Weight: 83.9 kg

DRUGS (10)
  1. ZYPREXA [Suspect]
     Dosage: SEE IMAGE
     Dates: start: 19980101, end: 20010101
  2. ZYPREXA [Suspect]
     Dosage: SEE IMAGE
     Dates: start: 20020101, end: 20030601
  3. ZYPREXA [Suspect]
     Dosage: SEE IMAGE
     Dates: start: 20030601
  4. FLUOXETINE HCL [Concomitant]
  5. LITHIUM CARBONATE [Concomitant]
  6. ABILIFY [Concomitant]
  7. SEROQUEL [Concomitant]
  8. RISPERDAL /SWE/(RISPERIDONE) [Concomitant]
  9. ZOLOFT [Concomitant]
  10. INDERAL [Concomitant]

REACTIONS (6)
  - DIABETES MELLITUS [None]
  - DIABETES MELLITUS INADEQUATE CONTROL [None]
  - DIABETIC KETOACIDOSIS [None]
  - GLYCOSURIA [None]
  - KETONURIA [None]
  - VISION BLURRED [None]
